FAERS Safety Report 4992220-2 (Version None)
Quarter: 2006Q2

REPORT INFORMATION
  Report Type: 
  Country: None (occurrence: None)
  Receive Date: 20060502
  Receipt Date: 20060425
  Transmission Date: 20061013
  Serious: Yes (Hospitalization)
  Sender: FDA-Public Use
  Company Number: SU-2006-004800

PATIENT
  Age: 80 Year
  Sex: Female
  Weight: 53.5244 kg

DRUGS (6)
  1. BENICAR HCT [Suspect]
     Indication: HYPERTENSION
     Dosage: 40.25 MG QD PO
     Route: 048
     Dates: start: 20050601
  2. NIFEDICAL [Concomitant]
  3. ASPIRIN [Concomitant]
  4. CENTRUM SILVER [Concomitant]
  5. AMOXICILLIN [Concomitant]
  6. TYLENOL (CAPLET) [Concomitant]

REACTIONS (12)
  - ASTHENIA [None]
  - CAROTID ARTERY DISEASE [None]
  - DIZZINESS [None]
  - DYSPNOEA EXERTIONAL [None]
  - FALL [None]
  - FIBULA FRACTURE [None]
  - INTERSTITIAL LUNG DISEASE [None]
  - LOSS OF CONSCIOUSNESS [None]
  - PATELLA FRACTURE [None]
  - SYNCOPE [None]
  - TIBIA FRACTURE [None]
  - WALKING AID USER [None]
